FAERS Safety Report 22065783 (Version 2)
Quarter: 2023Q2

REPORT INFORMATION
  Report Type: Spontaneous
  Country: US (occurrence: US)
  Receive Date: 20230306
  Receipt Date: 20230630
  Transmission Date: 20230721
  Serious: No
  Sender: FDA-Public Use
  Company Number: US-PFIZER INC-PV202300040035

PATIENT
  Age: 52 Year
  Sex: Female
  Weight: 75.74 kg

DRUGS (1)
  1. NURTEC ODT [Suspect]
     Active Substance: RIMEGEPANT SULFATE
     Indication: Migraine prophylaxis
     Dosage: UNK, ALTERNATE DAY
     Route: 048
     Dates: start: 2022

REACTIONS (1)
  - Therapeutic product effect incomplete [Unknown]
